FAERS Safety Report 4575279-6 (Version None)
Quarter: 2005Q1

REPORT INFORMATION
  Report Type: 
  Country: None (occurrence: None)
  Receive Date: 20050127
  Receipt Date: 20050127
  Transmission Date: 20050727
  Serious: Yes (Disabling)
  Sender: FDA-Public Use
  Company Number: None

PATIENT
  Age: 72 Year
  Sex: Female
  Weight: 64.4108 kg

DRUGS (5)
  1. EVISTA [Suspect]
     Indication: OSTEOPENIA
     Dosage: 60 MG PO QD
     Route: 048
     Dates: start: 20021108, end: 20041101
  2. AMITRIPTYLINE [Concomitant]
  3. LOVASTATIN [Concomitant]
  4. PREVACID [Concomitant]
  5. NALDALOL [Concomitant]

REACTIONS (1)
  - DYSPNOEA EXERTIONAL [None]
